FAERS Safety Report 6357654-2 (Version None)
Quarter: 2009Q3

REPORT INFORMATION
  Report Type: 
  Country: None (occurrence: None)
  Receive Date: 20090911
  Receipt Date: 20090903
  Transmission Date: 20100115
  Serious: Yes (Death)
  Sender: FDA-Public Use
  Company Number: OMPQ-PR-0909S-0774

PATIENT
  Age: 22 Year
  Sex: Male

DRUGS (1)
  1. OMNIPAQUE 300 [Suspect]
     Indication: NEOPLASM MALIGNANT
     Dosage: SINGLE DOSE, I.V.
     Route: 042
     Dates: start: 20090827, end: 20090827

REACTIONS (1)
  - RESPIRATORY DISORDER [None]
